FAERS Safety Report 10960646 (Version 1)
Quarter: 2015Q1

REPORT INFORMATION
  Report Type: Spontaneous
  Country: CN (occurrence: None)
  Receive Date: 20150325
  Receipt Date: 20150325
  Transmission Date: 20150721
  Serious: Yes (Hospitalization, Other)
  Sender: FDA-Public Use
  Company Number: CN2015GSK037039

PATIENT
  Age: 24 Year
  Sex: Male

DRUGS (2)
  1. CORTICOSTEROID [Suspect]
     Active Substance: CORTICOSTEROID NOS
     Indication: HEPATITIS B
  2. LAMIVUDINE (LAMIVUDINE) [Suspect]
     Active Substance: LAMIVUDINE
     Indication: HEPATITIS B

REACTIONS (14)
  - Myopathy [None]
  - Sinus arrest [None]
  - Alanine aminotransferase increased [None]
  - Myositis [None]
  - Ventricular pre-excitation [None]
  - Upper respiratory tract infection [None]
  - Mental disorder [None]
  - Muscle atrophy [None]
  - Supraventricular extrasystoles [None]
  - Ventricular extrasystoles [None]
  - Conduction disorder [None]
  - Blood creatine phosphokinase increased [None]
  - Muscular weakness [None]
  - Glycogen storage disease type II [None]
